FAERS Safety Report 11516880 (Version 1)
Quarter: 2015Q3

REPORT INFORMATION
  Report Type: Spontaneous
  Country: US (occurrence: US)
  Receive Date: 20150917
  Receipt Date: 20150917
  Transmission Date: 20151125
  Serious: Yes (Life-Threatening, Hospitalization, Other)
  Sender: FDA-Public Use
  Company Number: US-ELI_LILLY_AND_COMPANY-US201509005260

PATIENT
  Age: 84 Year
  Sex: Female

DRUGS (3)
  1. LISINOPRIL. [Concomitant]
     Active Substance: LISINOPRIL
  2. METFORMIN [Concomitant]
     Active Substance: METFORMIN HYDROCHLORIDE
     Dosage: 500 MG, UNK
  3. HUMALOG [Suspect]
     Active Substance: INSULIN LISPRO
     Indication: TYPE 2 DIABETES MELLITUS
     Dosage: UNK
     Route: 065
     Dates: start: 201507

REACTIONS (11)
  - Underdose [Unknown]
  - Transient ischaemic attack [Unknown]
  - Cerebral artery occlusion [Unknown]
  - Thrombosis [Unknown]
  - Hemiplegia [Unknown]
  - Speech disorder [Unknown]
  - Transient ischaemic attack [Unknown]
  - Brain injury [Unknown]
  - Blood glucose abnormal [Unknown]
  - Cerebrovascular accident [Unknown]
  - Arterial occlusive disease [Unknown]

NARRATIVE: CASE EVENT DATE: 201507
